FAERS Safety Report 4330782-9 (Version None)
Quarter: 2004Q1

REPORT INFORMATION
  Report Type: 
  Country: None (occurrence: None)
  Receive Date: 20040331
  Receipt Date: 20040316
  Transmission Date: 20041129
  Serious: No
  Sender: FDA-Public Use
  Company Number: US_0403101521

PATIENT
  Age: 82 Year
  Sex: Male
  Weight: 73 kg

DRUGS (4)
  1. HUMULIN N [Suspect]
     Dosage: 10 U IN THE EVENING
     Dates: start: 20040101
  2. GLUCOTROL [Concomitant]
  3. LISINOPRIL [Concomitant]
  4. HYDROCHLOROTHIAZIDE [Concomitant]

REACTIONS (3)
  - BLOOD GLUCOSE INCREASED [None]
  - NIGHT SWEATS [None]
  - PHARMACEUTICAL PRODUCT COMPLAINT [None]
